FAERS Safety Report 11053520 (Version 1)
Quarter: 2015Q2

REPORT INFORMATION
  Report Type: Spontaneous
  Country: US (occurrence: US)
  Receive Date: 20150421
  Receipt Date: 20150421
  Transmission Date: 20150821
  Serious: Yes (Hospitalization, Other)
  Sender: FDA-Public Use
  Company Number: GXBR2015US001236

PATIENT
  Age: 67 Year
  Sex: Male
  Weight: 104.31 kg

DRUGS (1)
  1. AZITHROMYCIN [Suspect]
     Active Substance: AZITHROMYCIN ANHYDROUS
     Indication: PHARYNGITIS STREPTOCOCCAL
     Dosage: 2 TABLETS ON DAY ONE, THEN ONE TABLET DAILY THEREAFTER
     Route: 065
     Dates: start: 20150311, end: 20150314

REACTIONS (4)
  - Guillain-Barre syndrome [Not Recovered/Not Resolved]
  - Abasia [Not Recovered/Not Resolved]
  - Aphasia [Not Recovered/Not Resolved]
  - Dysphagia [Not Recovered/Not Resolved]

NARRATIVE: CASE EVENT DATE: 20150314
